FAERS Safety Report 12350480 (Version 1)
Quarter: 2016Q2

REPORT INFORMATION
  Report Type: Report from Study
  Country: TW (occurrence: TW)
  Receive Date: 20160510
  Receipt Date: 20160510
  Transmission Date: 20160815
  Serious: Yes (Hospitalization, Other)
  Sender: FDA-Public Use
  Company Number: TW-GLAXOSMITHKLINE-TW2016GSK064313

PATIENT
  Age: 44 Year
  Weight: 62 kg

DRUGS (3)
  1. DICLOFENAC [Suspect]
     Active Substance: DICLOFENAC
     Indication: ORAL PAIN
     Dosage: 25 MG, 1D
     Route: 048
     Dates: start: 20140826, end: 20141115
  2. CETUXIMAB [Suspect]
     Active Substance: CETUXIMAB
     Dosage: 250 MG/M2, WE
     Route: 042
     Dates: start: 20140916, end: 20141111
  3. CETUXIMAB [Suspect]
     Active Substance: CETUXIMAB
     Indication: SQUAMOUS CELL CARCINOMA
     Dosage: 400 MG/M2, QD
     Route: 042
     Dates: start: 20140910, end: 20140910

REACTIONS (2)
  - Upper gastrointestinal haemorrhage [Recovered/Resolved]
  - Lower respiratory tract infection [Recovered/Resolved]

NARRATIVE: CASE EVENT DATE: 20140923
